FAERS Safety Report 5320989-6 (Version None)
Quarter: 2007Q2

REPORT INFORMATION
  Report Type: 
  Country: None (occurrence: None)
  Receive Date: 20070510
  Receipt Date: 20070430
  Transmission Date: 20071010
  Serious: Yes (Other)
  Sender: FDA-Public Use
  Company Number: PHBS2007BR07578

PATIENT
  Age: 28 Year
  Sex: Male
  Weight: 84 kg

DRUGS (3)
  1. TRILEPTAL [Suspect]
     Indication: COMPLEX PARTIAL SEIZURES
     Dosage: 900 MG, Q12H
     Route: 048
  2. TRILEPTAL [Suspect]
     Dosage: 900 MG, Q12H
     Route: 048
  3. CLOBAZAM [Concomitant]
     Indication: COMPLEX PARTIAL SEIZURES
     Dosage: 30 MG, BID
     Route: 048
     Dates: start: 19970101

REACTIONS (4)
  - AMNESIA [None]
  - COMPLEX PARTIAL SEIZURES [None]
  - DEPRESSION [None]
  - HEADACHE [None]
